FAERS Safety Report 18314403 (Version 6)
Quarter: 2022Q1

REPORT INFORMATION
  Report Type: Spontaneous
  Country: JP (occurrence: JP)
  Receive Date: 20200925
  Receipt Date: 20220308
  Transmission Date: 20220423
  Serious: Yes (Hospitalization, Other)
  Sender: FDA-Public Use
  Company Number: NVSC2020JP259376

PATIENT
  Age: 62 Year
  Sex: Male

DRUGS (18)
  1. BASILIXIMAB [Suspect]
     Active Substance: BASILIXIMAB
     Indication: Immunosuppressant drug therapy
     Dosage: 20 MG
     Route: 042
     Dates: start: 20170221, end: 20170221
  2. BASILIXIMAB [Suspect]
     Active Substance: BASILIXIMAB
     Indication: Prophylaxis against transplant rejection
  3. EVEROLIMUS [Suspect]
     Active Substance: EVEROLIMUS
     Indication: Immunosuppressant drug therapy
     Dosage: 1.5 MG
     Route: 048
     Dates: start: 20170524
  4. EVEROLIMUS [Suspect]
     Active Substance: EVEROLIMUS
     Indication: Prophylaxis against transplant rejection
  5. CYCLOSPORINE [Suspect]
     Active Substance: CYCLOSPORINE
     Indication: Immunosuppressant drug therapy
     Dosage: 300 MG
     Route: 048
     Dates: start: 20170906, end: 20170928
  6. CYCLOSPORINE [Suspect]
     Active Substance: CYCLOSPORINE
     Indication: Prophylaxis against transplant rejection
  7. RITUXIMAB [Suspect]
     Active Substance: RITUXIMAB
     Indication: Immunosuppressant drug therapy
     Dosage: INDUCTION THERAPY 2 WEEKS PRIOR TO THE OPERATION
     Route: 065
  8. MYCOPHENOLATE MOFETIL [Suspect]
     Active Substance: MYCOPHENOLATE MOFETIL
     Indication: Immunosuppressant drug therapy
     Dosage: INDUCTION THERAPY 2 WEEKS PRIOR TO THE OPERATION
     Route: 065
  9. TACROLIMUS [Suspect]
     Active Substance: TACROLIMUS
     Indication: Immunosuppressant drug therapy
     Dosage: INDUCTION THERAPY 2 WEEKS PRIOR TO THE OPERATION
     Route: 065
  10. TACROLIMUS [Suspect]
     Active Substance: TACROLIMUS
     Indication: Product used for unknown indication
     Dosage: 12 MG
     Route: 065
  11. TACROLIMUS [Suspect]
     Active Substance: TACROLIMUS
     Dosage: 12 MG
     Route: 065
  12. TACROLIMUS [Suspect]
     Active Substance: TACROLIMUS
     Dosage: 11 MG
     Route: 065
  13. TACROLIMUS [Suspect]
     Active Substance: TACROLIMUS
     Dosage: 10 MG
     Route: 065
  14. TACROLIMUS [Suspect]
     Active Substance: TACROLIMUS
     Dosage: 8 MG
     Route: 065
  15. TACROLIMUS [Suspect]
     Active Substance: TACROLIMUS
     Dosage: 7 MG
     Route: 065
  16. TACROLIMUS [Suspect]
     Active Substance: TACROLIMUS
     Dosage: 5 MG
     Route: 065
  17. METHYLPREDNISOLONE [Suspect]
     Active Substance: METHYLPREDNISOLONE
     Indication: Immunosuppressant drug therapy
     Dosage: 2 MG
     Route: 048
     Dates: start: 20170313
  18. METHYLPREDNISOLONE [Suspect]
     Active Substance: METHYLPREDNISOLONE
     Indication: Prophylaxis against transplant rejection
     Dosage: 2 MG
     Route: 048

REACTIONS (4)
  - Aplasia pure red cell [Recovering/Resolving]
  - Parvovirus B19 infection [Recovering/Resolving]
  - Thrombotic microangiopathy [Recovering/Resolving]
  - Renal impairment [Unknown]

NARRATIVE: CASE EVENT DATE: 20170421
